FAERS Safety Report 5052135-0 (Version None)
Quarter: 2006Q3

REPORT INFORMATION
  Report Type: 
  Country: None (occurrence: None)
  Receive Date: 20060712
  Receipt Date: 20060712
  Transmission Date: 20061208
  Serious: Yes (Hospitalization)
  Sender: FDA-Public Use
  Company Number: None

PATIENT
  Sex: Male
  Weight: 101.6965 kg

DRUGS (2)
  1. SIMVASTATIN [Suspect]
     Indication: DYSLIPIDAEMIA
     Dosage: 40MG  DAILY  PO
     Route: 048
     Dates: start: 20060522, end: 20060623
  2. GEMFIBROZIL [Suspect]
     Indication: DYSLIPIDAEMIA
     Dosage: 600MG  BID  PO
     Route: 048
     Dates: start: 20060522, end: 20060623

REACTIONS (2)
  - MYOCARDIAL INFARCTION [None]
  - RHABDOMYOLYSIS [None]
